FAERS Safety Report 5941502-6 (Version None)
Quarter: 2008Q4

REPORT INFORMATION
  Report Type: 
  Country: None (occurrence: None)
  Receive Date: 20081105
  Receipt Date: 20081028
  Transmission Date: 20090506
  Serious: Yes (Other)
  Sender: FDA-Public Use
  Company Number: US-ROCHE-593988

PATIENT
  Age: 66 Year
  Sex: Male

DRUGS (1)
  1. BONIVA [Suspect]
     Indication: OSTEOPOROSIS
     Dosage: FORM: PILL
     Route: 065
     Dates: start: 20071001

REACTIONS (1)
  - ARRHYTHMIA [None]
